FAERS Safety Report 12379246 (Version 1)
Quarter: 2016Q2

REPORT INFORMATION
  Report Type: Spontaneous
  Country: FR (occurrence: FR)
  Receive Date: 20160517
  Receipt Date: 20160517
  Transmission Date: 20160815
  Serious: Yes (Other)
  Sender: FDA-Public Use
  Company Number: FR-JNJFOC-20160512812

PATIENT
  Sex: Male

DRUGS (1)
  1. EPITOMAX [Suspect]
     Active Substance: TOPIRAMATE
     Indication: EPILEPSY
     Route: 048

REACTIONS (7)
  - Alopecia [Unknown]
  - Eye swelling [Unknown]
  - Lymphadenopathy [Unknown]
  - Abasia [Unknown]
  - Tremor [Unknown]
  - Pain [Unknown]
  - Weight decreased [Unknown]
